FAERS Safety Report 7954450-7 (Version None)
Quarter: 2011Q4

REPORT INFORMATION
  Report Type: 
  Country: None (occurrence: None)
  Receive Date: 20111202
  Receipt Date: 20111201
  Transmission Date: 20120403
  Serious: Yes (Death)
  Sender: FDA-Public Use
  Company Number: DE-JNJFOC-20111200108

PATIENT
  Age: 40 Year
  Sex: Female

DRUGS (1)
  1. IMODIUM [Suspect]
     Indication: IRRITABLE BOWEL SYNDROME
     Dosage: DAILY WITH HIGH DOSAGES
     Route: 065

REACTIONS (2)
  - ARTERIOSCLEROSIS CORONARY ARTERY [None]
  - OVERDOSE [None]
